FAERS Safety Report 8405833 (Version 5)
Quarter: 2017Q1

REPORT INFORMATION
  Report Type: Report from Study
  Country: DE (occurrence: DE)
  Receive Date: 20120214
  Receipt Date: 20170331
  Transmission Date: 20170429
  Serious: Yes (Other)
  Sender: FDA-Public Use
  Company Number: DE-ROCHE-1038301

PATIENT
  Age: 84 Year
  Sex: Female

DRUGS (6)
  1. BEVACIZUMAB [Suspect]
     Active Substance: BEVACIZUMAB
     Indication: RETINAL HAEMORRHAGE
     Dosage: 4 WEEKS AND 8 WEEKS POSTOPERATIVELY.
     Route: 050
  2. ALTEPLASE [Suspect]
     Active Substance: ALTEPLASE
     Indication: AGE-RELATED MACULAR DEGENERATION
     Dosage: SUBRETINAL INJECTION OF 10-20 MG DISSOLVED IN 0.05- 0.1 ML OF BSS
     Route: 065
  3. ALTEPLASE [Suspect]
     Active Substance: ALTEPLASE
     Indication: RETINAL HAEMORRHAGE
  4. SULFUR HEXAFLUORIDE [Suspect]
     Active Substance: SULFUR HEXAFLUORIDE
     Indication: RETINAL HAEMORRHAGE
  5. BEVACIZUMAB [Suspect]
     Active Substance: BEVACIZUMAB
     Indication: AGE-RELATED MACULAR DEGENERATION
     Dosage: DISSOLVED IN 0.05 ML OF BSS
     Route: 050
  6. SULFUR HEXAFLUORIDE [Suspect]
     Active Substance: SULFUR HEXAFLUORIDE
     Indication: AGE-RELATED MACULAR DEGENERATION
     Route: 065

REACTIONS (2)
  - Retinal pigment epithelial tear [Unknown]
  - Visual acuity reduced [Unknown]
